FAERS Safety Report 4763771-0 (Version None)
Quarter: 2005Q3

REPORT INFORMATION
  Report Type: 
  Country: None (occurrence: None)
  Receive Date: 20050908
  Receipt Date: 20050830
  Transmission Date: 20060218
  Serious: Yes (Hospitalization, Other)
  Sender: FDA-Public Use
  Company Number: US-BRISTOL-MYERS SQUIBB COMPANY-13095310

PATIENT
  Age: 67 Year
  Sex: Female
  Weight: 80 kg

DRUGS (12)
  1. COUMADIN [Suspect]
     Indication: ATRIAL FIBRILLATION
     Dosage: 1 MG ALTERNATING WITH 2 MG EVERY OTHER DAY FOR A 2-YEAR PERIOD
     Route: 048
  2. PLAVIX [Concomitant]
     Indication: ATRIAL FIBRILLATION
  3. LANOXIN [Concomitant]
  4. BENICAR [Concomitant]
     Dosage: 40/12.5 MG TABLETS
  5. CADUET [Concomitant]
  6. INNOPRAN [Concomitant]
     Route: 048
  7. CALTRATE [Concomitant]
     Dosage: DURATION=4 TO 5 YEARS
  8. MULTIVITAMIN [Concomitant]
     Dosage: DURATION=4 TO 5 YEARS
     Route: 048
  9. VITAMIN B6 [Concomitant]
  10. VITAMIN B-12 [Concomitant]
     Route: 048
  11. FOLIC ACID [Concomitant]
     Dosage: DURATION=4 TO 5 YEARS
  12. ASPIRIN [Concomitant]
     Indication: ATRIAL FIBRILLATION
     Dates: end: 20040101

REACTIONS (3)
  - CONTUSION [None]
  - HYPOAESTHESIA ORAL [None]
  - INTERNATIONAL NORMALISED RATIO FLUCTUATION [None]
